FAERS Safety Report 17717830 (Version 1)
Quarter: 2020Q2

REPORT INFORMATION
  Report Type: Spontaneous
  Country: US (occurrence: US)
  Receive Date: 20200428
  Receipt Date: 20200428
  Transmission Date: 20200714
  Serious: Yes (Hospitalization)
  Sender: FDA-Public Use
  Company Number: None

PATIENT
  Age: 18 Year
  Sex: Female
  Weight: 53.8 kg

DRUGS (6)
  1. CYTARABINE. [Suspect]
     Active Substance: CYTARABINE
     Dates: end: 20200316
  2. PREDNISONE. [Suspect]
     Active Substance: PREDNISONE
     Dates: end: 20200414
  3. VINCRISTINE SULFATE. [Suspect]
     Active Substance: VINCRISTINE SULFATE
     Dates: end: 20200407
  4. METHOTREXATE. [Suspect]
     Active Substance: METHOTREXATE
     Dates: end: 20200414
  5. ONCASPAR [Suspect]
     Active Substance: PEGASPARGASE
     Dates: end: 20200320
  6. DAUNORUBICIN [Suspect]
     Active Substance: DAUNORUBICIN
     Dates: end: 20200407

REACTIONS (12)
  - Gastrointestinal haemorrhage [None]
  - Small intestinal haemorrhage [None]
  - Melaena [None]
  - Haematochezia [None]
  - Seizure [None]
  - Herpes simplex test positive [None]
  - Neutropenia [None]
  - Fatigue [None]
  - Dyspnoea [None]
  - Haemoglobin decreased [None]
  - Pyrexia [None]
  - Pharyngitis [None]

NARRATIVE: CASE EVENT DATE: 20200416
